FAERS Safety Report 9353061 (Version 5)
Quarter: 2013Q4

REPORT INFORMATION
  Report Type: Spontaneous
  Country: IL (occurrence: IL)
  Receive Date: 20130618
  Receipt Date: 20131126
  Transmission Date: 20140711
  Serious: Yes (Hospitalization, Other)
  Sender: FDA-Public Use
  Company Number: IL-JNJFOC-20130608323

PATIENT
  Age: 58 Year
  Sex: Female

DRUGS (1)
  1. SIMPONI [Suspect]
     Indication: RHEUMATOID ARTHRITIS
     Route: 058

REACTIONS (7)
  - Headache [Not Recovered/Not Resolved]
  - Pain [Unknown]
  - Sjogren^s syndrome [Not Recovered/Not Resolved]
  - Skin burning sensation [Unknown]
  - Abdominal distension [Not Recovered/Not Resolved]
  - Pruritus generalised [Unknown]
  - Abdominal pain upper [Unknown]
